FAERS Safety Report 4607634-X (Version None)
Quarter: 2005Q1

REPORT INFORMATION
  Report Type: 
  Country: None (occurrence: None)
  Receive Date: 20050309
  Receipt Date: 20050218
  Transmission Date: 20050727
  Serious: Yes (Hospitalization)
  Sender: FDA-Public Use
  Company Number: FR_041205467

PATIENT
  Age: 74 Year
  Sex: Female
  Weight: 79 kg

DRUGS (5)
  1. PROZAC [Suspect]
     Indication: DEPRESSION
     Dosage: 10 DSG FORM DAY
     Dates: start: 20000101, end: 20030501
  2. CLONAZEPAM [Concomitant]
  3. CALCIUM GLUCONATE [Concomitant]
  4. MICARDIS [Concomitant]
  5. NOCERTONE (OXETORONE FUMARATE) [Concomitant]

REACTIONS (2)
  - PNEUMONITIS [None]
  - PULMONARY FIBROSIS [None]
